FAERS Safety Report 4478098-4 (Version None)
Quarter: 2004Q3

REPORT INFORMATION
  Report Type: 
  Country: None (occurrence: None)
  Receive Date: 20040923
  Receipt Date: 20040811
  Transmission Date: 20050211
  Serious: No
  Sender: FDA-Public Use
  Company Number: USA040875286

PATIENT
  Age: 65 Year
  Sex: Female

DRUGS (11)
  1. FORTEO [Suspect]
     Indication: BONE DENSITY DECREASED
     Dates: start: 20040501
  2. ARICEPT [Concomitant]
  3. MELATONIN [Concomitant]
  4. ASPIRIN [Concomitant]
  5. CALCIUM [Concomitant]
  6. VITAMIN C [Concomitant]
  7. ATENOLOL [Concomitant]
  8. PREDNISONE [Concomitant]
  9. MSM (METHYLSULFONYLMETHANE) [Concomitant]
  10. NAMENDA (MEMANTINE HYDROCHLORIDE) [Concomitant]
  11. AMITRIPTYLINE HCL [Concomitant]

REACTIONS (2)
  - BACK PAIN [None]
  - BLOOD URINE [None]
